FAERS Safety Report 8595259-3 (Version None)
Quarter: 2012Q3

REPORT INFORMATION
  Report Type: 
  Country: None (occurrence: None)
  Receive Date: 20120815
  Receipt Date: 20120811
  Transmission Date: 20120928
  Serious: Yes (Other)
  Sender: FDA-Public Use
  Company Number: US-VERTEX PHARMACEUTICALS INC.-AE-2012-012025

PATIENT
  Sex: Female
  Weight: 74.91 kg

DRUGS (7)
  1. GLYBURIDE [Concomitant]
     Indication: DIABETES MELLITUS
     Route: 048
  2. RIBAVIRIN [Concomitant]
     Route: 048
     Dates: start: 20120711, end: 20120806
  3. METFORMIN HYDROCHLORIDE [Concomitant]
     Indication: DIABETES MELLITUS
     Route: 048
  4. PEGASYS [Concomitant]
     Route: 058
     Dates: start: 20120711, end: 20120810
  5. ELAVIL [Concomitant]
  6. INCIVEK [Suspect]
     Indication: HEPATITIS C
     Route: 048
     Dates: start: 20120711, end: 20120810
  7. LISINOPRIL [Concomitant]
     Route: 048

REACTIONS (1)
  - BLOOD COUNT ABNORMAL [None]
